FAERS Safety Report 12940052 (Version 5)
Quarter: 2023Q2

REPORT INFORMATION
  Report Type: Spontaneous
  Country: US (occurrence: US)
  Receive Date: 20161115
  Receipt Date: 20230628
  Transmission Date: 20230722
  Serious: No
  Sender: FDA-Public Use
  Company Number: US-JNJFOC-20161020947

PATIENT
  Age: 3 Decade
  Sex: Male

DRUGS (22)
  1. RISPERDAL [Suspect]
     Active Substance: RISPERIDONE
     Indication: Schizophrenia
     Dosage: VARYING DOSE OF 0.5, 01, 1.5, 02 AND 2.5 MG
     Route: 048
     Dates: start: 20140330, end: 20140408
  2. RISPERDAL [Suspect]
     Active Substance: RISPERIDONE
     Indication: Irritability
     Route: 048
     Dates: start: 200403
  3. RISPERDAL [Suspect]
     Active Substance: RISPERIDONE
     Indication: Anxiety
     Route: 048
     Dates: start: 201305, end: 201312
  4. RISPERDAL [Suspect]
     Active Substance: RISPERIDONE
     Indication: Psychotic disorder
  5. RISPERDAL [Suspect]
     Active Substance: RISPERIDONE
     Indication: Mental disorder
  6. INVEGA [Suspect]
     Active Substance: PALIPERIDONE
     Indication: Psychotic disorder
     Route: 048
     Dates: start: 20141001, end: 20151205
  7. INVEGA [Suspect]
     Active Substance: PALIPERIDONE
     Indication: Schizophrenia
  8. INVEGA [Suspect]
     Active Substance: PALIPERIDONE
     Indication: Irritability
  9. INVEGA [Suspect]
     Active Substance: PALIPERIDONE
     Indication: Anxiety
  10. INVEGA [Suspect]
     Active Substance: PALIPERIDONE
     Indication: Mental disorder
  11. INVEGA SUSTENNA [Suspect]
     Active Substance: PALIPERIDONE PALMITATE
     Indication: Schizophrenia
     Route: 030
     Dates: start: 20140929
  12. INVEGA SUSTENNA [Suspect]
     Active Substance: PALIPERIDONE PALMITATE
     Indication: Irritability
     Route: 030
     Dates: start: 20141001
  13. INVEGA SUSTENNA [Suspect]
     Active Substance: PALIPERIDONE PALMITATE
     Indication: Anxiety
     Dosage: VARYING DOSE OF 156 AND 234 MG
     Route: 030
     Dates: start: 20141008, end: 20141014
  14. INVEGA SUSTENNA [Suspect]
     Active Substance: PALIPERIDONE PALMITATE
     Indication: Psychotic disorder
     Route: 030
     Dates: start: 20141216, end: 20150429
  15. RISPERIDONE [Suspect]
     Active Substance: RISPERIDONE
     Indication: Schizophrenia
     Route: 065
     Dates: start: 20140415
  16. RISPERIDONE [Suspect]
     Active Substance: RISPERIDONE
     Indication: Anxiety
     Dosage: VARYING DOSE OF 02, 03 AND 04 MG
     Route: 065
     Dates: start: 20130509, end: 20131118
  17. RISPERIDONE [Suspect]
     Active Substance: RISPERIDONE
     Indication: Irritability
  18. RISPERIDONE [Suspect]
     Active Substance: RISPERIDONE
     Indication: Psychotic disorder
  19. RISPERIDONE [Suspect]
     Active Substance: RISPERIDONE
     Indication: Schizophrenia
     Route: 048
  20. RISPERIDONE [Suspect]
     Active Substance: RISPERIDONE
     Indication: Irritability
  21. RISPERIDONE [Suspect]
     Active Substance: RISPERIDONE
     Indication: Anxiety
  22. RISPERIDONE [Suspect]
     Active Substance: RISPERIDONE
     Indication: Psychotic disorder

REACTIONS (5)
  - Galactorrhoea [Unknown]
  - Blood prolactin increased [Unknown]
  - Gynaecomastia [Unknown]
  - Emotional distress [Unknown]
  - Sedation [Unknown]

NARRATIVE: CASE EVENT DATE: 20140101
